FAERS Safety Report 10392028 (Version 1)
Quarter: 2014Q3

REPORT INFORMATION
  Report Type: Spontaneous
  Country: JP (occurrence: JP)
  Receive Date: 20140819
  Receipt Date: 20140819
  Transmission Date: 20150326
  Serious: Yes (Hospitalization, Other)
  Sender: FDA-Public Use
  Company Number: PHHY2002JP003012

PATIENT
  Age: 68 Year
  Sex: Male

DRUGS (3)
  1. GLIVEC [Suspect]
     Active Substance: IMATINIB MESYLATE
     Indication: CHRONIC MYELOID LEUKAEMIA
     Dosage: UNK UKN, UNK
     Dates: start: 200201
  2. INTERFERON ALFA NOS [Concomitant]
     Active Substance: INTERFERON ALFA-2A OR INTERFERON ALFA-2B
     Dosage: UNK UKN, UNK
  3. HYDROXYCARBAMIDE [Concomitant]
     Active Substance: HYDROXYUREA
     Dosage: UNK UKN, UNK
     Dates: start: 199909

REACTIONS (5)
  - Cardiomegaly [Unknown]
  - Oedema peripheral [Unknown]
  - Face oedema [Unknown]
  - Rash generalised [Unknown]
  - Pleural effusion [Unknown]

NARRATIVE: CASE EVENT DATE: 20020114
